FAERS Safety Report 16463025 (Version 5)
Quarter: 2020Q4

REPORT INFORMATION
  Report Type: Report from Study
  Country: JP (occurrence: JP)
  Receive Date: 20190621
  Receipt Date: 20201203
  Transmission Date: 20210113
  Serious: Yes (Death, Life-Threatening, Hospitalization, Other)
  Sender: FDA-Public Use
  Company Number: JP-GLAXOSMITHKLINE-JP2018JPN123974

PATIENT
  Age: 9 Decade
  Sex: Male

DRUGS (25)
  1. RELVAR ELLIPTA [Concomitant]
     Active Substance: FLUTICASONE FUROATE\VILANTEROL TRIFENATATE
     Indication: ASTHMA
     Dosage: 200 ?G, 1D
  2. EPINASTINE HYDROCHLORIDE. [Concomitant]
     Active Substance: EPINASTINE HYDROCHLORIDE
     Indication: ASTHMA
     Dosage: 20 MG, 1D
  3. CARBOCISTEINE TABLETS [Concomitant]
     Active Substance: CARBOCYSTEINE
     Dosage: 2250 MG, 1D
  4. LOSARTAN K TABLETS [Concomitant]
     Dosage: 25 MG, 1D
  5. REMERON TABLETS [Concomitant]
     Dosage: 15 MG, 1D
  6. CEFEPIME [Concomitant]
     Active Substance: CEFEPIME HYDROCHLORIDE
     Indication: PNEUMONIA
     Dosage: UNK
     Dates: start: 20180820
  7. THEOPHYLLINE SUSTAINED-RELEASE TABLETS [Concomitant]
     Indication: ASTHMA
     Dosage: 800 MG, 1D
  8. VERAPAMIL HYDROCHLORIDE TABLETS [Concomitant]
     Dosage: 160 MG, 1D
  9. AMITIZA CAPSULE [Concomitant]
     Dosage: 96 ?G, 1D
  10. SOL-MELCORT [Concomitant]
     Active Substance: METHYLPREDNISOLONE SODIUM SUCCINATE
     Indication: ASTHMA
     Dosage: UNK
  11. SPIRIVA RESPIMAT [Concomitant]
     Active Substance: TIOTROPIUM BROMIDE
     Indication: ASTHMA
     Dosage: 5 ?G, 1D
  12. PIPERACILLIN SODIUM + TAZOBACTAM SODIUM [Concomitant]
     Active Substance: PIPERACILLIN SODIUM\TAZOBACTAM SODIUM
     Indication: PYREXIA
     Dosage: UNK
     Dates: start: 20180617, end: 20180622
  13. METHYCOBAL TABLET [Concomitant]
     Dosage: 4500 ?G, 1D
  14. METILDIGOXIN [Concomitant]
     Active Substance: METILDIGOXIN
     Dosage: 0.4 MG, 1D
  15. SINGULAIR TABLETS [Concomitant]
     Indication: ASTHMA
     Dosage: 10 MG, 1D
  16. MEPOLIZUMAB [Suspect]
     Active Substance: MEPOLIZUMAB
     Indication: ASTHMA
     Dosage: 100 MG
     Route: 058
     Dates: start: 20180427, end: 20180427
  17. PREDONINE [Concomitant]
     Active Substance: PREDNISOLONE
     Indication: ASTHMA
     Dosage: 5 MG, 1D
  18. URIEF OD [Concomitant]
     Dosage: 16 MG, 1D
  19. MOSAPRIDE CITRATE TABLETS [Concomitant]
     Active Substance: MOSAPRIDE CITRATE
     Indication: PROPHYLAXIS
     Dosage: 45 MG, 1D
  20. MIYA-BM FINE GRANULES [Concomitant]
     Indication: PROPHYLAXIS
     Dosage: UNK
  21. MEPOLIZUMAB [Suspect]
     Active Substance: MEPOLIZUMAB
     Dosage: 100 MG
     Route: 058
     Dates: start: 20180608, end: 20180608
  22. RILMAZAFONE HYDROCHLORIDE HYDRATE [Concomitant]
     Active Substance: RILMAZAFONE HYDROCHLORIDE
     Dosage: 2 MG, 1D
  23. NEXIUM [Concomitant]
     Active Substance: ESOMEPRAZOLE MAGNESIUM
     Indication: PROPHYLAXIS
     Dosage: 20 MG, 1D
  24. MAGMITT TABLET [Concomitant]
     Dosage: 1125 MG, 1D
  25. KIPRES [Concomitant]
     Active Substance: MONTELUKAST SODIUM
     Indication: ASTHMA
     Dosage: UNK
     Route: 048

REACTIONS (7)
  - Pyrexia [Recovered/Resolved]
  - Pneumonia [Fatal]
  - Asthma [Recovered/Resolved]
  - Drug ineffective [Unknown]
  - Inappropriate schedule of product administration [Unknown]
  - Asthma [Fatal]
  - Pneumonia [Recovering/Resolving]

NARRATIVE: CASE EVENT DATE: 20180517
